FAERS Safety Report 4622487-1 (Version None)
Quarter: 2005Q1

REPORT INFORMATION
  Report Type: 
  Country: None (occurrence: None)
  Receive Date: 20050324
  Receipt Date: 20050324
  Transmission Date: 20050727
  Serious: No
  Sender: FDA-Public Use
  Company Number: None

PATIENT
  Sex: Female

DRUGS (14)
  1. AREDIA [Suspect]
     Indication: BREAST CANCER METASTATIC
     Dosage: Q 6 WKS BY ONCOLOGIST
  2. HERCEPTIN [Concomitant]
  3. NARELPINE [Concomitant]
  4. K [Concomitant]
  5. NEURONTIN [Concomitant]
  6. FERROUS SULFATE TAB [Concomitant]
  7. ULTRACET [Concomitant]
  8. CALCIUM GLUCONATE [Concomitant]
  9. DYAZIDE [Concomitant]
  10. NORVASC [Concomitant]
  11. PREVACID [Concomitant]
  12. FLOGARD [Concomitant]
  13. ALLEGRA [Concomitant]
  14. HALCION [Concomitant]

REACTIONS (2)
  - OSTEONECROSIS [None]
  - TOOTH EXTRACTION [None]
